FAERS Safety Report 9782578 (Version 1)
Quarter: 2013Q4

REPORT INFORMATION
  Report Type: Spontaneous
  Country: US (occurrence: None)
  Receive Date: 20131224
  Receipt Date: 20131224
  Transmission Date: 20140711
  Serious: Yes (Other)
  Sender: FDA-Public Use
  Company Number: None

PATIENT
  Age: 72 Year
  Sex: Female
  Weight: 63.96 kg

DRUGS (16)
  1. DOXYCYLINE [Suspect]
     Indication: EYE INFECTION
     Dosage: 1 PILL A DAY MOUTH
     Route: 048
     Dates: start: 20131014, end: 20131103
  2. DOXYCYLINE [Suspect]
     Indication: ROSACEA
     Dosage: 1 PILL A DAY MOUTH
     Route: 048
     Dates: start: 20131014, end: 20131103
  3. VITAMINS [Concomitant]
  4. LIVER PILLS [Concomitant]
  5. COLON CLEANSE [Concomitant]
  6. MAJIC MOUTHWASH [Concomitant]
  7. LIDOCAINE [Concomitant]
  8. KIDS BENADRYL [Concomitant]
  9. VICOPROFEN [Concomitant]
  10. PREDNISONE [Concomitant]
  11. HYDROCODONE [Concomitant]
  12. MINOCYCLINE [Concomitant]
  13. METOCLOPRAMIDE [Concomitant]
  14. METRONIDAZOLE [Concomitant]
  15. CLOTRIMAZOLE-BETAMETHASONE [Concomitant]
  16. DOXYCYCLINE HYCLATE [Concomitant]

REACTIONS (8)
  - Hypoaesthesia oral [None]
  - Abdominal pain upper [None]
  - Drug ineffective [None]
  - Lip blister [None]
  - Eructation [None]
  - Abdominal pain [None]
  - Thermal burn [None]
  - Discomfort [None]
